FAERS Safety Report 15010128 (Version 2)
Quarter: 2019Q1

REPORT INFORMATION
  Report Type: Spontaneous
  Country: US (occurrence: US)
  Receive Date: 20180614
  Receipt Date: 20190212
  Transmission Date: 20190417
  Serious: Yes (Other)
  Sender: FDA-Public Use
  Company Number: US-PFIZER INC-2018243014

PATIENT
  Sex: Female

DRUGS (2)
  1. EFFEXOR XR [Suspect]
     Active Substance: VENLAFAXINE HYDROCHLORIDE
     Dosage: 225 MG, DAILY (150MG CAPSULE + 75MG CAPSULE)
  2. EFFEXOR XR [Suspect]
     Active Substance: VENLAFAXINE HYDROCHLORIDE
     Dosage: 225 MG, DAILY (150MG CAPSULE + 75MG CAPSULE)

REACTIONS (8)
  - Suicidal ideation [Unknown]
  - Withdrawal syndrome [Unknown]
  - Chills [Unknown]
  - Mood swings [Unknown]
  - Hyperhidrosis [Unknown]
  - Fear [Unknown]
  - Malaise [Unknown]
  - Nausea [Unknown]
